FAERS Safety Report 24904414 (Version 1)
Quarter: 2025Q1

REPORT INFORMATION
  Report Type: Spontaneous
  Country: US (occurrence: US)
  Receive Date: 20250130
  Receipt Date: 20250130
  Transmission Date: 20250409
  Serious: Yes (Other)
  Sender: GILEAD
  Company Number: US-GILEAD-2025-0701857

PATIENT

DRUGS (4)
  1. ATRIPLA [Suspect]
     Active Substance: EFAVIRENZ\EMTRICITABINE\TENOFOVIR DISOPROXIL FUMARATE
     Indication: Product used for unknown indication
     Route: 048
     Dates: start: 20060717, end: 20200101
  2. STRIBILD [Suspect]
     Active Substance: COBICISTAT\ELVITEGRAVIR\EMTRICITABINE\TENOFOVIR DISOPROXIL FUMARATE
     Indication: Product used for unknown indication
     Route: 048
     Dates: start: 20120827, end: 20200101
  3. VIREAD [Suspect]
     Active Substance: TENOFOVIR DISOPROXIL FUMARATE
     Indication: Product used for unknown indication
     Route: 048
     Dates: start: 20020101, end: 20200101
  4. TRUVADA [Suspect]
     Active Substance: EMTRICITABINE\TENOFOVIR DISOPROXIL FUMARATE
     Indication: Product used for unknown indication
     Route: 048
     Dates: start: 20040802, end: 20200101

REACTIONS (2)
  - Renal failure [Unknown]
  - Bone density decreased [Unknown]
